FAERS Safety Report 16151247 (Version 1)
Quarter: 2019Q2

REPORT INFORMATION
  Report Type: Spontaneous
  Country: US (occurrence: US)
  Receive Date: 20190402
  Receipt Date: 20190402
  Transmission Date: 20190711
  Serious: Yes (Other)
  Sender: FDA-Public Use
  Company Number: US-009507513-1903USA013400

PATIENT
  Sex: Female

DRUGS (1)
  1. KEYTRUDA [Suspect]
     Active Substance: PEMBROLIZUMAB
     Indication: COLORECTAL CANCER
     Dosage: UNK
     Route: 042
     Dates: end: 201903

REACTIONS (3)
  - Mental disorder [Unknown]
  - Seizure [Unknown]
  - Dysarthria [Unknown]

NARRATIVE: CASE EVENT DATE: 201903
